FAERS Safety Report 12815680 (Version 1)
Quarter: 2016Q4

REPORT INFORMATION
  Report Type: Spontaneous
  Country: DE (occurrence: DE)
  Receive Date: 20161005
  Receipt Date: 20161005
  Transmission Date: 20170207
  Serious: Yes (Other)
  Sender: FDA-Public Use
  Company Number: DE-MYLANLABS-2016M1042493

PATIENT

DRUGS (9)
  1. AGYRAX                             /00759701/ [Concomitant]
     Indication: NAUSEA
     Dosage: UNK (STARTED AT THE BEGINNING OF MAY 2015)
     Route: 048
     Dates: start: 20150501, end: 20150625
  2. VALDOXAN [Suspect]
     Active Substance: AGOMELATINE
     Indication: DEPRESSION
     Dosage: 25 MG, QD (25 [MG/D ]/ SINCE 2014)
     Route: 048
     Dates: start: 20150315, end: 20150727
  3. IBUPROFEN. [Concomitant]
     Active Substance: IBUPROFEN
     Indication: PAIN
     Dosage: UNK (AS NEEDED, CIRCA ONCE/WEEK)
     Route: 048
     Dates: start: 20150315, end: 20150727
  4. SERTRALINE [Suspect]
     Active Substance: SERTRALINE HYDROCHLORIDE
     Indication: DEPRESSION
     Dosage: UNK (100 [MG/D (-75 MG/D) ]/ SINCE 2014, IN GW 13 1/7 (JUNE 2015) INCREASED TO 100 MG/D)
     Route: 048
     Dates: start: 20150315, end: 20150727
  5. TAVOR (LORAZEPAM) [Concomitant]
     Active Substance: LORAZEPAM
     Indication: PANIC ATTACK
     Dosage: 0.5 MG, QD (0.5 [MG/D ]/ AS NEEDED, 1 - 2 TIMES/WK)
     Route: 048
     Dates: start: 20150315, end: 20150727
  6. CEFUROXIME. [Concomitant]
     Active Substance: CEFUROXIME
     Indication: PROPHYLAXIS URINARY TRACT INFECTION
     Dosage: UNK (1.5 [G/D ]/ DURING HOSPITAL STAY PRESCRIBED FOR 6 TO 8 WEEKS)
     Route: 042
     Dates: start: 20150722, end: 20150727
  7. FOLIO                              /00349401/ [Concomitant]
     Active Substance: CYANOCOBALAMIN\FOLIC ACID
     Indication: PROPHYLAXIS OF NEURAL TUBE DEFECT
     Dosage: 0.4 MG, QD (0.4 [MG/D ]/ -?)
     Route: 048
  8. PROMETHAZINE [Concomitant]
     Active Substance: PROMETHAZINE\PROMETHAZINE HYDROCHLORIDE
     Indication: PANIC ATTACK
     Dosage: 25 MG, QD (25 [MG/D ]/ -?, SINCE MARCH 2014, AS NEEDED, MAX 3 TIMES/WK)
     Route: 048
  9. UNACID                             /00903602/ [Concomitant]
     Indication: PYELONEPHRITIS
     Dosage: UNK (-?)
     Route: 065
     Dates: start: 20150721, end: 20150722

REACTIONS (5)
  - Exposure during pregnancy [Unknown]
  - Retroplacental haematoma [Recovered/Resolved]
  - Pyelonephritis [Recovered/Resolved]
  - Abortion late [Recovered/Resolved]
  - Pyrexia [Recovered/Resolved]
